FAERS Safety Report 6828920-9 (Version None)
Quarter: 2010Q3

REPORT INFORMATION
  Report Type: 
  Country: None (occurrence: None)
  Receive Date: 20100709
  Receipt Date: 20070223
  Transmission Date: 20110219
  Serious: No
  Sender: FDA-Public Use
  Company Number: US-PFIZER INC-2007015860

PATIENT
  Sex: Male
  Weight: 83.91 kg

DRUGS (14)
  1. CHANTIX [Suspect]
     Indication: SMOKING CESSATION THERAPY
     Dates: start: 20061201
  2. LEXAPRO [Concomitant]
  3. COUMADIN [Concomitant]
  4. TAMSULOSIN HYDROCHLORIDE [Concomitant]
  5. LASIX [Concomitant]
  6. FERROUS SULFATE [Concomitant]
  7. ACIDOPHILUS [Concomitant]
  8. VITAMIN C [Concomitant]
  9. VICODIN [Concomitant]
     Indication: BACK PAIN
  10. XANAX [Concomitant]
     Indication: RELAXATION THERAPY
  11. PREDNISONE [Concomitant]
  12. VITAMIN B [Concomitant]
  13. NORVASC [Concomitant]
  14. LIPITOR [Concomitant]

REACTIONS (1)
  - HYPERSOMNIA [None]
